FAERS Safety Report 8046943-1 (Version None)
Quarter: 2012Q1

REPORT INFORMATION
  Report Type: 
  Country: None (occurrence: None)
  Receive Date: 20120116
  Receipt Date: 20120112
  Transmission Date: 20120608
  Serious: Yes (Hospitalization)
  Sender: FDA-Public Use
  Company Number: IT-BAYER-2012-004102

PATIENT

DRUGS (7)
  1. LORANS [Concomitant]
     Dosage: DAILY DOSE 2.5 MG
     Route: 048
     Dates: start: 20110415, end: 20120109
  2. PAROXETINE HYDROCHLORIDE [Concomitant]
     Dosage: DAILY DOSE 20 MG
     Route: 048
     Dates: start: 19960615, end: 20120109
  3. NEBIVOLOL HCL [Concomitant]
     Dosage: DAILY DOSE 5 MG
     Route: 048
     Dates: start: 20111117, end: 20120109
  4. NEXAVAR [Suspect]
     Indication: HEPATIC NEOPLASM MALIGNANT
     Dosage: DAILY DOSE 200 MG
     Route: 048
     Dates: start: 20110812
  5. NEBIVOLOL HCL [Concomitant]
     Dosage: DAILY DOSE 2.5 MG
     Route: 048
     Dates: start: 20111201, end: 20120109
  6. ADRENOCORTICOTROPHIC HORMONE [Concomitant]
  7. NOVOMIX [INSULIN ASPART] [Concomitant]
     Dosage: DAILY DOSE 100 IU
     Route: 058
     Dates: start: 20000615, end: 20120106

REACTIONS (1)
  - HYPERGLYCAEMIA [None]
